FAERS Safety Report 4943941-9 (Version None)
Quarter: 2006Q1

REPORT INFORMATION
  Report Type: 
  Country: None (occurrence: None)
  Receive Date: 20060313
  Receipt Date: 20060313
  Transmission Date: 20060701
  Serious: Yes (Life-Threatening)
  Sender: FDA-Public Use
  Company Number: None

PATIENT
  Age: 74 Year
  Sex: Female
  Weight: 76.6 kg

DRUGS (7)
  1. PLAVIX [Suspect]
     Indication: CORONARY ARTERY DISEASE
     Dates: start: 20050111, end: 20060221
  2. NORVASC [Concomitant]
  3. HYTRIN [Concomitant]
  4. LASIX [Concomitant]
  5. NTG SL [Concomitant]
  6. PHOSLO [Concomitant]
  7. EPOGEN [Concomitant]

REACTIONS (4)
  - COAGULOPATHY [None]
  - GASTROINTESTINAL HAEMORRHAGE [None]
  - NAUSEA [None]
  - VOMITING [None]
